FAERS Safety Report 9479578 (Version 1)
Quarter: 2013Q3

REPORT INFORMATION
  Report Type: Spontaneous
  Country: IT (occurrence: IT)
  Receive Date: 20130827
  Receipt Date: 20130827
  Transmission Date: 20140515
  Serious: Yes (Hospitalization, Other)
  Sender: FDA-Public Use
  Company Number: IT-JNJFOC-20130813107

PATIENT
  Age: 3 Year
  Sex: Female

DRUGS (5)
  1. CETIRIZINE [Suspect]
     Route: 065
  2. CETIRIZINE [Suspect]
     Indication: PRODUCT USED FOR UNKNOWN INDICATION
     Route: 065
  3. FLU VACCINE [Suspect]
     Indication: IMMUNISATION
     Route: 065
  4. CHLORPHENIRAMINE W/PARACETAMOL [Suspect]
     Indication: TONSILLITIS
  5. LEVODROPROPIZINE [Suspect]
     Indication: TONSILLITIS
     Route: 065

REACTIONS (1)
  - Stevens-Johnson syndrome [Recovered/Resolved]
